FAERS Safety Report 9596269 (Version 4)
Quarter: 2014Q2

REPORT INFORMATION
  Report Type: Spontaneous
  Country: IT (occurrence: IT)
  Receive Date: 20131004
  Receipt Date: 20140421
  Transmission Date: 20141212
  Serious: Yes (Other)
  Sender: FDA-Public Use
  Company Number: IT-PFIZER INC-2013281889

PATIENT
  Age: 80 Year
  Sex: Male

DRUGS (14)
  1. TRIATEC [Suspect]
     Dosage: 1 DF, DAILY
     Route: 048
  2. TRIATEC [Suspect]
     Dosage: 37.5 MG, TOTAL DOSE
     Route: 048
     Dates: start: 20130919, end: 20130919
  3. TOTALIP [Suspect]
     Dosage: 1 DF, DAILY
     Route: 048
  4. TOTALIP [Suspect]
     Dosage: 200 MG, TOTAL DOSE
     Route: 048
     Dates: start: 20130919, end: 20130919
  5. EUTIROX [Suspect]
     Dosage: 1 DF, DAILY
     Route: 048
  6. EUTIROX [Suspect]
     Dosage: 750 UG, TOTAL DOSE
     Route: 048
     Dates: start: 20130919, end: 20130919
  7. LASIX [Suspect]
     Dosage: 1 DF, DAILY
     Route: 048
  8. LASIX [Suspect]
     Dosage: 250 MG, TOTAL DOSE
     Route: 048
     Dates: start: 20130919, end: 20130919
  9. AXAGON [Suspect]
     Dosage: 1 DF, DAILY
     Route: 048
  10. AXAGON [Suspect]
     Dosage: 400 MG, TOTAL DOSE
     Route: 048
     Dates: start: 20130919, end: 20130919
  11. TOLEP [Suspect]
     Dosage: 1 DF, DAILY
     Route: 048
  12. TOLEP [Suspect]
     Dosage: 6 G, TOTAL DOSE
     Route: 048
     Dates: start: 20130919, end: 20130919
  13. TIKLID [Concomitant]
     Dosage: 500 MG, UNK
     Route: 048
  14. CONGESCOR [Concomitant]
     Dosage: 2.5 MG, UNK
     Route: 048

REACTIONS (10)
  - Overdose [Recovering/Resolving]
  - Fall [Recovering/Resolving]
  - Injury [Recovering/Resolving]
  - Limb injury [Recovering/Resolving]
  - Facial bones fracture [Recovering/Resolving]
  - Intentional self-injury [Unknown]
  - Fatigue [Unknown]
  - Depressed mood [Unknown]
  - Blood creatine phosphokinase increased [Unknown]
  - Blood creatinine increased [Unknown]
